FAERS Safety Report 18947043 (Version 1)
Quarter: 2021Q1

REPORT INFORMATION
  Report Type: Spontaneous
  Country: US (occurrence: US)
  Receive Date: 20210227
  Receipt Date: 20210227
  Transmission Date: 20210420
  Serious: No
  Sender: FDA-Public Use
  Company Number: US-ROCHE-2556276

PATIENT
  Sex: Female
  Weight: 94.5 kg

DRUGS (1)
  1. XOLAIR [Suspect]
     Active Substance: OMALIZUMAB
     Indication: CHRONIC SPONTANEOUS URTICARIA
     Route: 058

REACTIONS (4)
  - Urticaria [Recovered/Resolved]
  - Anxiety [Recovering/Resolving]
  - Panic attack [Unknown]
  - Sensation of foreign body [Recovered/Resolved]
